FAERS Safety Report 11856714 (Version 1)
Quarter: 2015Q4

REPORT INFORMATION
  Report Type: Spontaneous
  Country: DK (occurrence: SE)
  Receive Date: 20151221
  Receipt Date: 20151221
  Transmission Date: 20160305
  Serious: Yes (Hospitalization)
  Sender: FDA-Public Use
  Company Number: SE-FRI-1000081801

PATIENT
  Age: 59 Year
  Sex: Female

DRUGS (2)
  1. ESCITALOPRAM [Suspect]
     Active Substance: ESCITALOPRAM OXALATE
     Indication: PRODUCT USED FOR UNKNOWN INDICATION
     Dosage: OVERDOSE: TOOK 20 TABLES A 20 MG OF CIPRALEX
     Route: 065
     Dates: start: 20151201, end: 20151201
  2. ATENOLOL. [Suspect]
     Active Substance: ATENOLOL
     Indication: PRODUCT USED FOR UNKNOWN INDICATION
     Dosage: TOOK 14 TABLES A 50 MG OF ATENOLOL
     Route: 065
     Dates: start: 20151201, end: 20151201

REACTIONS (4)
  - Poisoning [Unknown]
  - Heart rate decreased [Unknown]
  - Nausea [Unknown]
  - Intentional overdose [Unknown]

NARRATIVE: CASE EVENT DATE: 20151201
